FAERS Safety Report 15862346 (Version 1)
Quarter: 2019Q1

REPORT INFORMATION
  Report Type: Spontaneous
  Country: JP (occurrence: JP)
  Receive Date: 20190124
  Receipt Date: 20190124
  Transmission Date: 20190417
  Serious: Yes (Hospitalization, Other)
  Sender: FDA-Public Use
  Company Number: JP-MYLANLABS-2019M1005584

PATIENT
  Age: 7 Decade
  Sex: Female

DRUGS (7)
  1. DOXORUBICIN [Suspect]
     Active Substance: DOXORUBICIN
     Indication: DIFFUSE LARGE B-CELL LYMPHOMA
     Dosage: EVERY THREE TO FOUR WEEKS FOR FOUR CYCLES
     Route: 065
     Dates: start: 201409
  2. CYCLOPHOSPHAMIDE. [Suspect]
     Active Substance: CYCLOPHOSPHAMIDE
     Indication: DIFFUSE LARGE B-CELL LYMPHOMA
     Dosage: EVERY THREE TO FOUR WEEKS FOR FOUR CYCLES
     Route: 065
     Dates: start: 201409
  3. RITUXIMAB. [Suspect]
     Active Substance: RITUXIMAB
     Dosage: TWO CYCLES OF MONOTHERAPY
     Route: 065
  4. VINCRISTINE [Suspect]
     Active Substance: VINCRISTINE
     Indication: DIFFUSE LARGE B-CELL LYMPHOMA
     Dosage: EVERY THREE TO FOUR WEEKS FOR FOUR CYCLES
     Route: 065
     Dates: start: 201409
  5. RITUXIMAB. [Suspect]
     Active Substance: RITUXIMAB
     Indication: DIFFUSE LARGE B-CELL LYMPHOMA
     Dosage: EVERY THREE TO FOUR WEEKS FOR FOUR CYCLES
     Route: 065
     Dates: start: 201409
  6. PREDNISONE. [Suspect]
     Active Substance: PREDNISONE
     Indication: DIFFUSE LARGE B-CELL LYMPHOMA
     Dosage: EVERY THREE TO FOUR WEEKS FOR FOUR CYCLES
     Route: 065
     Dates: start: 201409
  7. METHOTREXATE. [Suspect]
     Active Substance: METHOTREXATE
     Indication: DIFFUSE LARGE B-CELL LYMPHOMA
     Route: 065

REACTIONS (3)
  - Bacteraemia [Recovered/Resolved]
  - Lymphoproliferative disorder [Unknown]
  - Helicobacter infection [Recovered/Resolved]

NARRATIVE: CASE EVENT DATE: 2014
